FAERS Safety Report 6408666-1 (Version None)
Quarter: 2009Q4

REPORT INFORMATION
  Report Type: 
  Country: None (occurrence: None)
  Receive Date: 20091021
  Receipt Date: 20091010
  Transmission Date: 20100525
  Serious: Yes (Death)
  Sender: FDA-Public Use
  Company Number: US-PFIZER INC-2009250252

PATIENT
  Sex: Female

DRUGS (3)
  1. ADRIAMYCIN PFS [Suspect]
     Indication: BREAST CANCER
  2. TAXOTERE [Suspect]
     Indication: BREAST CANCER
     Dosage: UNK, CYCLIC
     Route: 042
  3. CYTOXAN [Suspect]
     Indication: BREAST CANCER

REACTIONS (1)
  - COLITIS [None]
